FAERS Safety Report 13993781 (Version 4)
Quarter: 2018Q2

REPORT INFORMATION
  Report Type: Spontaneous
  Country: IE (occurrence: IE)
  Receive Date: 20170920
  Receipt Date: 20180413
  Transmission Date: 20180711
  Serious: Yes (Hospitalization)
  Sender: FDA-Public Use
  Company Number: IE-BIOGEN-2017BV000279

PATIENT
  Age: 16 Week
  Sex: Male
  Weight: 5.97 kg

DRUGS (14)
  1. ALPROLIX [Suspect]
     Active Substance: EFTRENONACOG ALFA
     Dosage: 250 VIAL
     Route: 042
     Dates: start: 20170602, end: 20170914
  2. ALPROLIX [Suspect]
     Active Substance: EFTRENONACOG ALFA
     Route: 042
     Dates: start: 20170807
  3. ALPROLIX [Suspect]
     Active Substance: EFTRENONACOG ALFA
     Route: 042
     Dates: start: 20170904
  4. ALPROLIX [Suspect]
     Active Substance: EFTRENONACOG ALFA
     Dosage: 500 VIAL
     Route: 042
     Dates: start: 20170602, end: 20170914
  5. ALPROLIX [Suspect]
     Active Substance: EFTRENONACOG ALFA
     Dosage: 1000 VIAL
     Route: 042
     Dates: start: 20170602, end: 20170914
  6. LOSEC [Concomitant]
     Active Substance: OMEPRAZOLE
     Indication: GASTROOESOPHAGEAL REFLUX DISEASE
     Route: 065
     Dates: start: 20170701, end: 20171101
  7. INFANRIX HEXA [Concomitant]
     Active Substance: DIPHTHERIA AND TETANUS TOXOIDS AND ACELLULAR PERTUSSIS ADSORBED, INACTIVATED POLIOVIRUS AND HAEMOPHILUS B CONJUGATE AND HEPATITIS B VIRUS VACCINE
     Indication: PROPHYLAXIS
     Dosage: FIRST DOSE OF CHILDHOOD PRIMARY IMMUNIZATIONS
     Route: 065
     Dates: start: 20170802
  8. ALPROLIX [Suspect]
     Active Substance: EFTRENONACOG ALFA
     Indication: FACTOR IX DEFICIENCY
     Dosage: BOLUS INJECTIONS, THEN ALTERNATE DAYS DURING THE PERIOPERATIVE PERIOD
     Route: 042
     Dates: start: 201704
  9. PREVNAR 13 [Concomitant]
     Active Substance: PNEUMOCOCCAL 13-VALENT CONJUGATE VACCINE
     Indication: PROPHYLAXIS
     Route: 065
  10. BEXSERO [Concomitant]
     Active Substance: MENINGOCOCCAL GROUP B VACCINE
     Indication: PROPHYLAXIS
     Route: 065
  11. ALPROLIX [Suspect]
     Active Substance: EFTRENONACOG ALFA
     Route: 042
  12. ALPROLIX [Suspect]
     Active Substance: EFTRENONACOG ALFA
     Route: 042
     Dates: start: 20170807
  13. ALPROLIX [Suspect]
     Active Substance: EFTRENONACOG ALFA
     Route: 042
     Dates: start: 201709
  14. EPANUTIN INFATABS [Concomitant]
     Indication: EPILEPSY
     Dosage: PHENYTOIN /50MG/20MG
     Route: 065
     Dates: start: 20170613, end: 20170804

REACTIONS (4)
  - Erythema [Recovered/Resolved]
  - Heart rate increased [Unknown]
  - Crying [Unknown]
  - Irritability [Unknown]

NARRATIVE: CASE EVENT DATE: 20170914
